FAERS Safety Report 10030558 (Version 2)
Quarter: 2014Q1

REPORT INFORMATION
  Report Type: Spontaneous
  Country: US (occurrence: US)
  Receive Date: 20140323
  Receipt Date: 20140323
  Transmission Date: 20141002
  Serious: No
  Sender: FDA-Public Use
  Company Number: US-ALLERGAN-1317980US

PATIENT
  Age: 46 Year
  Sex: Female

DRUGS (5)
  1. LATISSE 0.03% [Suspect]
     Indication: GROWTH OF EYELASHES
     Dosage: 2 GTT, QHS
     Route: 061
     Dates: end: 20131111
  2. ARMOUR THYROID [Concomitant]
     Indication: THYROID DISORDER
     Dosage: 30 MG, UNK
     Route: 048
  3. ESTRADIOL CREAM [Concomitant]
     Indication: HORMONE REPLACEMENT THERAPY
  4. MAGNESIUM SUPPLEMENT [Concomitant]
     Indication: PRODUCT USED FOR UNKNOWN INDICATION
  5. CREAM NOS [Concomitant]
     Indication: PRODUCT USED FOR UNKNOWN INDICATION

REACTIONS (12)
  - Foreign body sensation in eyes [Recovered/Resolved]
  - Foreign body sensation in eyes [Recovered/Resolved]
  - Muscle twitching [Recovered/Resolved]
  - Dizziness [Recovering/Resolving]
  - Vertigo [Recovered/Resolved]
  - Nausea [Recovering/Resolving]
  - Vertigo [Recovered/Resolved]
  - Sinus headache [Recovering/Resolving]
  - Sinusitis [Recovering/Resolving]
  - Wrong technique in drug usage process [Unknown]
  - Wrong technique in drug usage process [Unknown]
  - Headache [Recovering/Resolving]
